FAERS Safety Report 4747067-9 (Version None)
Quarter: 2005Q3

REPORT INFORMATION
  Report Type: 
  Country: None (occurrence: None)
  Receive Date: 20050815
  Receipt Date: 20050801
  Transmission Date: 20060218
  Serious: Yes (Death, Hospitalization)
  Sender: FDA-Public Use
  Company Number: 216555

PATIENT
  Age: 54 Year
  Sex: Female
  Weight: 80.3 kg

DRUGS (12)
  1. AVASTIN [Suspect]
     Indication: PANCREATIC CARCINOMA METASTATIC
     Dosage: 10 MG/KG, DAYS 1+15, INTRAVENOUS; 5 MG/KG, DAYS 1+15, INTRAVENOUS
     Route: 042
     Dates: end: 20050223
  2. AVASTIN [Suspect]
     Indication: PANCREATIC CARCINOMA METASTATIC
     Dosage: 10 MG/KG, DAYS 1+15, INTRAVENOUS; 5 MG/KG, DAYS 1+15, INTRAVENOUS
     Route: 042
     Dates: start: 20041004
  3. LIPITOR [Concomitant]
  4. LABETALOL (LABETALOL HYDROCHLORIDE) [Concomitant]
  5. ALPHAGAN [Concomitant]
  6. LEXAPRO [Concomitant]
  7. COMPAZINE [Concomitant]
  8. ZOFRAN [Concomitant]
  9. COLACE (DOCUSATE SODIUM) [Concomitant]
  10. REGLAN [Concomitant]
  11. FIORICET (ACETAMINOPHEN, BUTALBITAL, CAFFEINE) [Concomitant]
  12. AMBIEN [Concomitant]

REACTIONS (10)
  - ASCITES [None]
  - ATRIAL THROMBOSIS [None]
  - BACK PAIN [None]
  - DYSPNOEA [None]
  - GASTROINTESTINAL PERFORATION [None]
  - HYPERTENSION [None]
  - LOSS OF CONSCIOUSNESS [None]
  - PULMONARY ARTERY THROMBOSIS [None]
  - PYREXIA [None]
  - VENA CAVA THROMBOSIS [None]
